FAERS Safety Report 8428818-9 (Version None)
Quarter: 2012Q2

REPORT INFORMATION
  Report Type: 
  Country: None (occurrence: None)
  Receive Date: 20120604
  Receipt Date: 20120521
  Transmission Date: 20120825
  Serious: Yes (Other)
  Sender: FDA-Public Use
  Company Number: FR-SEPTODONT-201200606

PATIENT
  Age: 23 Year
  Sex: Female

DRUGS (1)
  1. ADRENALIN [Suspect]
     Indication: LOCAL ANAESTHESIA
     Dosage: DENTAL
     Route: 004
     Dates: start: 20120302

REACTIONS (5)
  - PURULENCE [None]
  - INJECTION SITE NECROSIS [None]
  - STOMATITIS [None]
  - DECREASED APPETITE [None]
  - FEEDING DISORDER [None]
